FAERS Safety Report 6602051-5 (Version None)
Quarter: 2010Q1

REPORT INFORMATION
  Report Type: 
  Country: None (occurrence: None)
  Receive Date: 20100225
  Receipt Date: 20100216
  Transmission Date: 20100710
  Serious: Yes (Other)
  Sender: FDA-Public Use
  Company Number: US-WATSON-2010-01801

PATIENT
  Age: 68 Year
  Sex: Female

DRUGS (1)
  1. CIPROFLOXACIN HCL [Suspect]
     Indication: DRUG USE FOR UNKNOWN INDICATION
     Dosage: UNKNOWN DOSE TAKEN FOR 10 DAYS
     Route: 048
     Dates: start: 20091231, end: 20100109

REACTIONS (10)
  - ARRHYTHMIA [None]
  - COORDINATION ABNORMAL [None]
  - DIARRHOEA [None]
  - DIZZINESS [None]
  - FALL [None]
  - HALLUCINATION [None]
  - NAUSEA [None]
  - PARANOIA [None]
  - SACCADIC EYE MOVEMENT [None]
  - VISION BLURRED [None]
